FAERS Safety Report 20751448 (Version 3)
Quarter: 2022Q3

REPORT INFORMATION
  Report Type: Spontaneous
  Country: US (occurrence: US)
  Receive Date: 20220426
  Receipt Date: 20220815
  Transmission Date: 20221026
  Serious: No
  Sender: FDA-Public Use
  Company Number: US-PFIZER INC-202200412867

PATIENT
  Age: 34 Year
  Sex: Female

DRUGS (5)
  1. IBRANCE [Suspect]
     Active Substance: PALBOCICLIB
     Dosage: 125 MG
  2. IBRANCE [Suspect]
     Active Substance: PALBOCICLIB
     Dosage: 75 MG
  3. IBRANCE [Suspect]
     Active Substance: PALBOCICLIB
     Dosage: 100 MG
  4. TAMOXIFEN [Concomitant]
     Active Substance: TAMOXIFEN
     Dosage: UNK
  5. LUPRON [Concomitant]
     Active Substance: LEUPROLIDE ACETATE
     Dosage: UNK

REACTIONS (12)
  - Feeling abnormal [Unknown]
  - Hot flush [Unknown]
  - Flushing [Unknown]
  - Arthralgia [Unknown]
  - Fatigue [Unknown]
  - Rhinalgia [Unknown]
  - Muscle strain [Unknown]
  - Haemorrhoids [Unknown]
  - Dysphonia [Unknown]
  - Muscle spasms [Unknown]
  - Muscle tightness [Unknown]
  - Off label use [Unknown]
